FAERS Safety Report 8862064 (Version 1)
Quarter: 2012Q4

REPORT INFORMATION
  Report Type: 
  Country: GR (occurrence: GR)
  Receive Date: 20121026
  Receipt Date: 20121026
  Transmission Date: 20130627
  Serious: Yes (Other)
  Sender: FDA-Public Use
  Company Number: GR-PFIZER INC-2012264346

PATIENT
  Age: 80 Year
  Sex: Female

DRUGS (6)
  1. LIPITOR [Suspect]
     Dosage: 10 mg, once daily
     Dates: start: 2009
  2. TEGRETOL [Concomitant]
     Dosage: UNK
  3. LEVOTHYROXINE [Concomitant]
     Dosage: UNK
  4. PLAVIX [Concomitant]
     Dosage: UNK
  5. EXFORGE [Concomitant]
     Dosage: UNK
  6. INNOHEP [Concomitant]
     Dosage: UNK

REACTIONS (2)
  - Cardiac disorder [Unknown]
  - Psoriasis [Unknown]
